FAERS Safety Report 9638487 (Version 1)
Quarter: 2013Q4

REPORT INFORMATION
  Report Type: Spontaneous
  Country: US (occurrence: US)
  Receive Date: 20131022
  Receipt Date: 20131022
  Transmission Date: 20140711
  Serious: Yes (Hospitalization)
  Sender: FDA-Public Use
  Company Number: US-BAYER-2013-126982

PATIENT
  Age: 34 Year
  Sex: Female

DRUGS (6)
  1. YAZ [Suspect]
     Dosage: UNK
  2. TOPAMAX [Concomitant]
     Dosage: 100 MG, DAILY
  3. PREDNISONE [Concomitant]
     Dosage: 40 MG, UNK
  4. ROCEPHIN [Concomitant]
     Dosage: UNK
     Dates: start: 20090415
  5. Z-PAK [Concomitant]
     Dosage: UNK
     Dates: start: 20090415
  6. LEVAQUIN [Concomitant]
     Dosage: UNK

REACTIONS (2)
  - Pulmonary embolism [Recovering/Resolving]
  - Pulmonary infarction [None]
